FAERS Safety Report 6429641-7 (Version None)
Quarter: 2009Q4

REPORT INFORMATION
  Report Type: 
  Country: None (occurrence: None)
  Receive Date: 20091106
  Receipt Date: 20091026
  Transmission Date: 20100525
  Serious: Yes (Other)
  Sender: FDA-Public Use
  Company Number: US-JNJCH-2009028200

PATIENT
  Age: 69 Year
  Sex: Female

DRUGS (1)
  1. VISINE EYE DROPS [Suspect]
     Indication: DRUG USE FOR UNKNOWN INDICATION
     Dosage: TEXT:UNSPECIFIED
     Route: 047

REACTIONS (5)
  - CATARACT [None]
  - CAUSTIC INJURY [None]
  - CONJUNCTIVAL ABRASION [None]
  - HYPERSENSITIVITY [None]
  - OCULAR HYPERAEMIA [None]
